FAERS Safety Report 13042788 (Version 3)
Quarter: 2017Q1

REPORT INFORMATION
  Report Type: Spontaneous
  Country: US (occurrence: US)
  Receive Date: 20161219
  Receipt Date: 20170119
  Transmission Date: 20170428
  Serious: Yes (Hospitalization, Other)
  Sender: FDA-Public Use
  Company Number: US-SAOL THERAPEUTICS-2016SAO01237

PATIENT
  Sex: Female

DRUGS (5)
  1. BACLOFEN. [Suspect]
     Active Substance: BACLOFEN
     Indication: BACK PAIN
     Route: 037
  2. BACLOFEN. [Suspect]
     Active Substance: BACLOFEN
     Indication: SPINAL PAIN
  3. CLONIDINE. [Suspect]
     Active Substance: CLONIDINE
     Route: 037
  4. MORPHINE [Suspect]
     Active Substance: MORPHINE
     Route: 037
  5. UNSPECIFIED NARCOTICS [Suspect]
     Active Substance: UNSPECIFIED INGREDIENT

REACTIONS (7)
  - Muscle spasticity [Unknown]
  - Sedation [Unknown]
  - Staphylococcal infection [Unknown]
  - Off label use [Unknown]
  - Hypovolaemia [Unknown]
  - Cellulitis [Unknown]
  - Hypotension [Unknown]

NARRATIVE: CASE EVENT DATE: 2014
